FAERS Safety Report 5313387-2 (Version None)
Quarter: 2007Q2

REPORT INFORMATION
  Report Type: 
  Country: None (occurrence: None)
  Receive Date: 20070427
  Receipt Date: 20070427
  Transmission Date: 20071010
  Serious: No
  Sender: FDA-Public Use
  Company Number: None

PATIENT

DRUGS (1)
  1. PREDNISONE TAB [Suspect]

REACTIONS (2)
  - ILL-DEFINED DISORDER [None]
  - PUSTULAR PSORIASIS [None]
